FAERS Safety Report 8628549 (Version 3)
Quarter: 2013Q2

REPORT INFORMATION
  Report Type: Spontaneous
  Country: US (occurrence: US)
  Receive Date: 20120621
  Receipt Date: 20130524
  Transmission Date: 20140414
  Serious: Yes (Other)
  Sender: FDA-Public Use
  Company Number: US-ROCHE-1078911

PATIENT
  Age: 22 Year
  Sex: Male
  Weight: 72.64 kg

DRUGS (2)
  1. ACCUTANE [Suspect]
     Indication: ACNE
     Route: 065
     Dates: start: 200411, end: 200504
  2. CLARAVIS [Suspect]
     Indication: ACNE
     Route: 065
     Dates: start: 200410, end: 200504

REACTIONS (9)
  - Inflammatory bowel disease [Unknown]
  - Crohn^s disease [Unknown]
  - Depression [Unknown]
  - Irritable bowel syndrome [Unknown]
  - Colitis ulcerative [Unknown]
  - Anxiety [Unknown]
  - Anal fistula [Unknown]
  - Anal abscess [Unknown]
  - Anal fissure [Unknown]
